FAERS Safety Report 8450321-0 (Version None)
Quarter: 2012Q2

REPORT INFORMATION
  Report Type: 
  Country: None (occurrence: None)
  Receive Date: 20120620
  Receipt Date: 20120612
  Transmission Date: 20120825
  Serious: No
  Sender: FDA-Public Use
  Company Number: PHHY2012JP042897

PATIENT
  Sex: Male
  Weight: 54 kg

DRUGS (3)
  1. ONBREZ [Suspect]
     Indication: CHRONIC OBSTRUCTIVE PULMONARY DISEASE
     Dosage: 150 UG, UNK
     Dates: start: 20120419, end: 20120514
  2. OLMESARTAN MEDOXOMIL [Suspect]
     Dosage: 20 MG, QD
     Route: 048
     Dates: start: 20120425, end: 20120517
  3. TANATRIL [Concomitant]
     Route: 048
     Dates: start: 20120425

REACTIONS (2)
  - DYSPNOEA [None]
  - VENTRICULAR EXTRASYSTOLES [None]
